FAERS Safety Report 15953569 (Version 2)
Quarter: 2019Q1

REPORT INFORMATION
  Report Type: Spontaneous
  Country: ES (occurrence: ES)
  Receive Date: 20190212
  Receipt Date: 20190218
  Transmission Date: 20190417
  Serious: Yes (Hospitalization, Other)
  Sender: FDA-Public Use
  Company Number: ES-PFIZER INC-2019057679

PATIENT
  Age: 53 Year
  Sex: Female

DRUGS (2)
  1. ADALIMUMAB [Suspect]
     Active Substance: ADALIMUMAB
     Indication: CROHN^S DISEASE
     Dosage: 40 MG, EVERY 15 DAYS
  2. METHOTREXATE. [Suspect]
     Active Substance: METHOTREXATE
     Indication: CROHN^S DISEASE
     Dosage: 15 MG, WEEKLY

REACTIONS (7)
  - Skin necrosis [Unknown]
  - Pancytopenia [Recovered/Resolved]
  - Product use in unapproved indication [Unknown]
  - Weight decreased [Unknown]
  - Eosinophilia [Unknown]
  - Thrombosis [Unknown]
  - Bone marrow failure [Unknown]
